FAERS Safety Report 4465999-6 (Version None)
Quarter: 2004Q3

REPORT INFORMATION
  Report Type: 
  Country: None (occurrence: None)
  Receive Date: 20040930
  Receipt Date: 20040916
  Transmission Date: 20050211
  Serious: Yes (Death)
  Sender: FDA-Public Use
  Company Number: 2004AP03852

PATIENT
  Age: 68 Year
  Sex: Male

DRUGS (15)
  1. OMEPRAL [Suspect]
     Indication: GASTRIC ULCER
     Dosage: 20 MG DAILY PO
     Route: 048
     Dates: start: 20040703, end: 20040714
  2. VEMAS S [Concomitant]
  3. D-SORBITOL [Concomitant]
  4. LENDORMIN [Concomitant]
  5. PURSENNID /SCH/ [Concomitant]
  6. GASTER D [Concomitant]
  7. DIPRIVAN [Concomitant]
  8. CITOSOL [Concomitant]
  9. MUSCULAX [Concomitant]
  10. EPHEDRINE SUL CAP [Concomitant]
  11. SEVOFLURANE [Concomitant]
  12. CEFAZOLIN SODIUM [Concomitant]
  13. GASTROZEPIN [Concomitant]
  14. SOSEGON [Concomitant]
  15. ATARAX [Concomitant]

REACTIONS (4)
  - BONE MARROW DEPRESSION [None]
  - GRANULOCYTOPENIA [None]
  - POST PROCEDURAL COMPLICATION [None]
  - SEPSIS [None]
